FAERS Safety Report 12481497 (Version 1)
Quarter: 2016Q2

REPORT INFORMATION
  Report Type: Spontaneous
  Country: US (occurrence: US)
  Receive Date: 20160620
  Receipt Date: 20160620
  Transmission Date: 20160815
  Serious: No
  Sender: FDA-Public Use
  Company Number: US-HERITAGE PHARMACEUTICALS-2016HTG00112

PATIENT
  Sex: Female

DRUGS (21)
  1. KEPPRA [Concomitant]
     Active Substance: LEVETIRACETAM
     Dosage: 4 UNK, UNK
  2. SPIRONOLACTONE. [Concomitant]
     Active Substance: SPIRONOLACTONE
     Dosage: 2 UNK, UNK
  3. NORVASC [Concomitant]
     Active Substance: AMLODIPINE BESYLATE
     Dosage: UNK
  4. ZANAFLEX [Concomitant]
     Active Substance: TIZANIDINE HYDROCHLORIDE
     Dosage: 4 UNK, AS NEEDED
  5. LASIX [Concomitant]
     Active Substance: FUROSEMIDE
     Dosage: UNK, AS NEEDED
  6. PRILOSEC [Concomitant]
     Active Substance: OMEPRAZOLE MAGNESIUM
  7. CHLORTHALIDONE. [Concomitant]
     Active Substance: CHLORTHALIDONE
  8. OXYCODONE [Concomitant]
     Active Substance: OXYCODONE
     Dosage: 4 UNK, AS NEEDED
  9. SYNTHROID [Concomitant]
     Active Substance: LEVOTHYROXINE SODIUM
  10. PROVIGIL [Concomitant]
     Active Substance: MODAFINIL
     Dosage: 2 UNK, UNK
  11. TEMAZEPAM. [Concomitant]
     Active Substance: TEMAZEPAM
  12. POTASSIUM [Concomitant]
     Active Substance: POTASSIUM
  13. PREDNISONE. [Concomitant]
     Active Substance: PREDNISONE
  14. INDOMETHACIN. [Suspect]
     Active Substance: INDOMETHACIN
     Dosage: ^X 2^
  15. SAVELLA [Concomitant]
     Active Substance: MILNACIPRAN HYDROCHLORIDE
     Dosage: 2 UNK, UNK
  16. AMBIEN CR [Concomitant]
     Active Substance: ZOLPIDEM TARTRATE
     Dosage: UNK
  17. VITAMIN D [Concomitant]
     Active Substance: CHOLECALCIFEROL
     Dosage: UNK, 1X/WEEK
  18. KLONOPIN [Concomitant]
     Active Substance: CLONAZEPAM
     Dosage: 2 UNK, UNK
  19. FROVATRIPTAN. [Concomitant]
     Active Substance: FROVATRIPTAN
     Dosage: 2 UNK, AS NEEDED
  20. ALBUTEROL INHALER [Concomitant]
     Active Substance: ALBUTEROL
  21. PROPRANOLOL HCL [Concomitant]
     Active Substance: PROPRANOLOL HYDROCHLORIDE
     Dosage: 2 UNK, UNK

REACTIONS (1)
  - Drug ineffective [Unknown]
